FAERS Safety Report 25477554 (Version 4)
Quarter: 2025Q3

REPORT INFORMATION
  Report Type: Report from Study
  Country: US (occurrence: US)
  Receive Date: 20250625
  Receipt Date: 20250821
  Transmission Date: 20251020
  Serious: Yes (Other)
  Sender: ACADIA PHARMACEUTICALS
  Company Number: US-ACADIA PHARMACEUTICALS INC.-ACA-2025-TRF-007419

PATIENT
  Sex: Female
  Weight: 34.4 kg

DRUGS (7)
  1. DAYBUE [Suspect]
     Active Substance: TROFINETIDE
     Indication: Rett syndrome
     Dosage: 50 MILLILITER, BID
     Route: 048
     Dates: start: 202306
  2. DAYBUE [Suspect]
     Active Substance: TROFINETIDE
     Route: 048
  3. DEPAKOTE [Concomitant]
     Active Substance: DIVALPROEX SODIUM
     Dosage: SPRINKLES, 375 MG, 3 CAP, ORAL, BID, FOR 90 DAYS, 540 CAP, 3 REFILL(S)
     Route: 048
  4. CULTURELLE [Concomitant]
     Active Substance: LACTOBACILLUS RHAMNOSUS
     Dosage: DIGESTIVE HEALTH EXTRA STR, BID, FOR 30 DAYS, 60 CAP, 5 REFIL
     Route: 048
  5. NIZORAL [Concomitant]
     Active Substance: KETOCONAZOLE
     Route: 061
  6. VITAMIN D3 [Concomitant]
     Active Substance: CHOLECALCIFEROL
     Dosage: 10 MCG/ML (400 INTI UNITS/ML) 2,000 UNITS, 5 ML, ORAL, 180 ML, 6 REFILL
     Route: 048
  7. VITAMIN D3 [Concomitant]
     Active Substance: CHOLECALCIFEROL
     Dosage: (400 INTI UNITS/ML) 50 MCG, 5 ML, ORAL, DAILY, 300 ML, 1 REFILL
     Route: 048

REACTIONS (9)
  - Melaena [Recovered/Resolved]
  - Constipation [Unknown]
  - Mood altered [Unknown]
  - Drug intolerance [Unknown]
  - Gastritis [Unknown]
  - Speech disorder [Unknown]
  - Diarrhoea [Recovered/Resolved]
  - Decreased appetite [Unknown]
  - Drug ineffective [Not Recovered/Not Resolved]
